FAERS Safety Report 12870809 (Version 1)
Quarter: 2016Q4

REPORT INFORMATION
  Report Type: Spontaneous
  Country: US (occurrence: US)
  Receive Date: 20161021
  Receipt Date: 20161021
  Transmission Date: 20170207
  Serious: Yes (Life-Threatening, Hospitalization, Disabling)
  Sender: FDA-Public Use
  Company Number: None

PATIENT
  Age: 69 Year
  Sex: Male
  Weight: 74.91 kg

DRUGS (5)
  1. ATORVASTATIN [Concomitant]
     Active Substance: ATORVASTATIN
  2. VIOXX [Suspect]
     Active Substance: ROFECOXIB
     Indication: BACK PAIN
     Dosage: ?          QUANTITY:1 PILL.; TWICE DAILY; BY MOUTH?
     Route: 048
     Dates: start: 20110101, end: 20111125
  3. HYDROCHLOROTHIAZIDE. [Concomitant]
     Active Substance: HYDROCHLOROTHIAZIDE
  4. NIFEDIPINE. [Concomitant]
     Active Substance: NIFEDIPINE
  5. METOPROL SUCC ER [Concomitant]

REACTIONS (5)
  - Product use issue [None]
  - Tooth loss [None]
  - Cerebrovascular accident [None]
  - Balance disorder [None]
  - Pain [None]

NARRATIVE: CASE EVENT DATE: 20111111
